FAERS Safety Report 20009363 (Version 1)
Quarter: 2021Q4

REPORT INFORMATION
  Report Type: Spontaneous
  Country: US (occurrence: US)
  Receive Date: 20211029
  Receipt Date: 20211029
  Transmission Date: 20220304
  Serious: Yes (Other)
  Sender: FDA-Public Use
  Company Number: US-HIKMA PHARMACEUTICALS USA INC.-US-H14001-21-04515

PATIENT
  Age: 68 Year
  Sex: Female

DRUGS (2)
  1. IDARUBICIN [Suspect]
     Active Substance: IDARUBICIN
     Indication: Acute myeloid leukaemia refractory
     Dosage: SEVEN DAYS OF STANDARD-DOSE CYTARABINE, AND THREE DAYS OF IDARUBICIN
     Route: 065
  2. CYTARABINE [Suspect]
     Active Substance: CYTARABINE
     Indication: Acute myeloid leukaemia refractory
     Dosage: SEVEN DAYS OF STANDARD-DOSE CYTARABINE, AND THREE DAYS OF IDARUBICIN
     Route: 065

REACTIONS (7)
  - Renal failure [Unknown]
  - Febrile neutropenia [Unknown]
  - Pneumonia [Unknown]
  - Mucosal inflammation [Unknown]
  - Vaginal haemorrhage [Unknown]
  - Hypoglycaemia [Unknown]
  - Hyperbilirubinaemia [Unknown]
